FAERS Safety Report 7240190-9 (Version None)
Quarter: 2011Q1

REPORT INFORMATION
  Report Type: 
  Country: None (occurrence: None)
  Receive Date: 20110124
  Receipt Date: 20110111
  Transmission Date: 20110831
  Serious: Yes (Other)
  Sender: FDA-Public Use
  Company Number: US-ELI_LILLY_AND_COMPANY-US201101003156

PATIENT
  Sex: Male

DRUGS (1)
  1. SYMBYAX [Suspect]
     Dosage: 6/25 MG, UNKNOWN

REACTIONS (1)
  - ATRIAL FIBRILLATION [None]
